FAERS Safety Report 10793617 (Version 1)
Quarter: 2015Q1

REPORT INFORMATION
  Report Type: Spontaneous
  Country: US (occurrence: US)
  Receive Date: 20150213
  Receipt Date: 20150213
  Transmission Date: 20150721
  Serious: Yes (Death)
  Sender: FDA-Public Use
  Company Number: CHPA2015US001956

PATIENT
  Age: 54 Year
  Sex: Male

DRUGS (2)
  1. ASPIRIN W/CAFFEINE/SALICYLAMIDE [Suspect]
     Active Substance: ACETAMINOPHEN\CAFFEINE\SALICYLAMIDE
     Indication: PRODUCT USED FOR UNKNOWN INDICATION
     Dosage: UNK
     Route: 048
  2. ACETAM/DIPHEN CITRATE [Suspect]
     Active Substance: ACETAMINOPHEN\DIPHENHYDRAMINE CITRATE
     Indication: PRODUCT USED FOR UNKNOWN INDICATION
     Dosage: UNK
     Route: 048

REACTIONS (2)
  - Intentional product misuse [Fatal]
  - Exposure via ingestion [None]
